FAERS Safety Report 4388110-9 (Version None)
Quarter: 2004Q2

REPORT INFORMATION
  Report Type: 
  Country: None (occurrence: None)
  Receive Date: 20040630
  Receipt Date: 20040630
  Transmission Date: 20050107
  Serious: Yes (Other)
  Sender: FDA-Public Use
  Company Number: None

PATIENT
  Sex: Female
  Weight: 136.0791 kg

DRUGS (2)
  1. ENBREL [Suspect]
     Indication: PSORIASIS
     Dosage: 25 MG TWICE/ WEEK SUBCUTANEOUS
     Route: 058
     Dates: start: 20040412, end: 20040419
  2. ENBREL [Suspect]
     Indication: PSORIATIC ARTHROPATHY
     Dosage: 25 MG TWICE/ WEEK SUBCUTANEOUS
     Route: 058
     Dates: start: 20040412, end: 20040419

REACTIONS (3)
  - INFLUENZA [None]
  - UPPER RESPIRATORY TRACT INFECTION [None]
  - URTICARIA [None]
